FAERS Safety Report 8449880-3 (Version None)
Quarter: 2012Q2

REPORT INFORMATION
  Report Type: 
  Country: None (occurrence: None)
  Receive Date: 20120620
  Receipt Date: 20120614
  Transmission Date: 20120825
  Serious: Yes (Death, Hospitalization, Other)
  Sender: FDA-Public Use
  Company Number: US-TEVA-338204USA

PATIENT
  Sex: Male

DRUGS (1)
  1. CLOZAPINE [Suspect]
     Route: 048
     Dates: end: 20120509

REACTIONS (5)
  - FAECALOMA [None]
  - SEPSIS [None]
  - PNEUMONIA [None]
  - BRAIN DEATH [None]
  - LOSS OF CONSCIOUSNESS [None]
